FAERS Safety Report 5263160-9 (Version None)
Quarter: 2007Q1

REPORT INFORMATION
  Report Type: 
  Country: None (occurrence: None)
  Receive Date: 20070312
  Receipt Date: 20070305
  Transmission Date: 20070707
  Serious: Yes (Hospitalization)
  Sender: FDA-Public Use
  Company Number: BR-GILEAD-2006-0009806

PATIENT
  Sex: Female

DRUGS (8)
  1. VIREAD [Suspect]
     Indication: ACQUIRED IMMUNODEFICIENCY SYNDROME
     Route: 048
     Dates: start: 20060101, end: 20060605
  2. VIREAD [Suspect]
     Dates: start: 20060601
  3. BENZOFIBRATE [Suspect]
     Indication: DYSLIPIDAEMIA
     Route: 048
     Dates: start: 20060201, end: 20060605
  4. BENZOFIBRATE [Suspect]
     Dates: start: 20060601
  5. ARCOXIA [Suspect]
     Indication: PAIN IN EXTREMITY
     Dates: start: 20060525, end: 20060605
  6. LAMIVUDINE [Concomitant]
     Indication: ACQUIRED IMMUNODEFICIENCY SYNDROME
     Route: 048
     Dates: start: 20050401, end: 20060605
  7. EFAVIRENZ [Concomitant]
     Indication: ACQUIRED IMMUNODEFICIENCY SYNDROME
     Route: 048
     Dates: start: 20050401, end: 20060605
  8. EFAVIRENZ [Concomitant]
     Dates: start: 20060601

REACTIONS (2)
  - RENAL FAILURE ACUTE [None]
  - RHABDOMYOLYSIS [None]
